FAERS Safety Report 15010883 (Version 1)
Quarter: 2018Q2

REPORT INFORMATION
  Report Type: Spontaneous
  Country: US (occurrence: US)
  Receive Date: 20180522
  Receipt Date: 20180522
  Transmission Date: 20180711
  Serious: Yes (Life-Threatening, Hospitalization, Disabling)
  Sender: FDA-Public Use
  Company Number: None

PATIENT
  Age: 79 Year
  Sex: Female
  Weight: 81.65 kg

DRUGS (2)
  1. GABAPENTIN. [Suspect]
     Active Substance: GABAPENTIN
  2. GENERIC NAVANE [Suspect]
     Active Substance: THIOTHIXENE

REACTIONS (10)
  - Asthma [None]
  - Parkinsonism [None]
  - Herpes ophthalmic [None]
  - Tooth fracture [None]
  - Fall [None]
  - Oral disorder [None]
  - Peripheral swelling [None]
  - Tongue disorder [None]
  - Drug intolerance [None]
  - Mouth haemorrhage [None]
